FAERS Safety Report 22382409 (Version 2)
Quarter: 2023Q2

REPORT INFORMATION
  Report Type: Spontaneous
  Country: FR (occurrence: FR)
  Receive Date: 20230530
  Receipt Date: 20230602
  Transmission Date: 20230721
  Serious: Yes (Other)
  Sender: FDA-Public Use
  Company Number: FR-TEVA-2023-FR-2891353

PATIENT
  Age: 83 Year
  Sex: Female

DRUGS (2)
  1. NITROFURANTOIN [Suspect]
     Active Substance: NITROFURANTOIN
     Indication: Urinary tract infection
     Dosage: 6 DOSAGE FORMS DAILY; 6 DF DAILY FOR 10 DAYS
     Route: 065
     Dates: start: 20230518, end: 202305
  2. IRBESARTAN [Concomitant]
     Active Substance: IRBESARTAN
     Indication: Hypertension

REACTIONS (10)
  - Hypertension [Not Recovered/Not Resolved]
  - Vertigo [Recovered/Resolved]
  - Pruritus [Recovering/Resolving]
  - Fatigue [Recovering/Resolving]
  - Nausea [Recovering/Resolving]
  - Lip dry [Recovering/Resolving]
  - Body temperature decreased [Unknown]
  - Decreased appetite [Recovering/Resolving]
  - Pollakiuria [Unknown]
  - Product prescribing error [Unknown]

NARRATIVE: CASE EVENT DATE: 20230501
